FAERS Safety Report 4508869-7 (Version None)
Quarter: 2004Q4

REPORT INFORMATION
  Report Type: 
  Country: None (occurrence: None)
  Receive Date: 20041123
  Receipt Date: 20041117
  Transmission Date: 20050328
  Serious: Yes (Hospitalization)
  Sender: FDA-Public Use
  Company Number: GB-BRISTOL-MYERS SQUIBB COMPANY-12773149

PATIENT
  Age: 60 Year
  Sex: Female
  Weight: 82 kg

DRUGS (10)
  1. CYCLOPHOSPHAMIDE [Suspect]
     Indication: BREAST CANCER
     Route: 042
     Dates: start: 20040423
  2. METHOTREXATE [Suspect]
     Indication: BREAST CANCER
     Route: 042
     Dates: start: 20040423
  3. FLUOROURACIL [Suspect]
     Indication: BREAST CANCER
     Route: 042
     Dates: start: 20040423
  4. EPIRUBICIN [Suspect]
     Indication: BREAST CANCER
     Dates: start: 20040101, end: 20040101
  5. RADIOTHERAPY [Concomitant]
     Dates: start: 20040801
  6. ZOLEDRONATE [Concomitant]
     Dates: start: 20040916
  7. WARFARIN SODIUM [Concomitant]
     Dates: start: 20040401
  8. DOMPERIDONE [Concomitant]
     Dates: start: 20040916, end: 20040918
  9. DEXAMETHASONE [Concomitant]
     Dates: start: 20040916, end: 20040918
  10. GRANISETRON [Concomitant]
     Dates: start: 20040916, end: 20040918

REACTIONS (1)
  - NEUTROPENIC SEPSIS [None]
